FAERS Safety Report 9816870 (Version 1)
Quarter: 2014Q1

REPORT INFORMATION
  Report Type: Spontaneous
  Country: US (occurrence: US)
  Receive Date: 20140114
  Receipt Date: 20140114
  Transmission Date: 20141002
  Serious: No
  Sender: FDA-Public Use
  Company Number: US-ENDO PHARMACEUTICALS INC.-ENDC20130017

PATIENT
  Sex: Male

DRUGS (3)
  1. ENDOCET 10MG/325MG [Suspect]
     Indication: PAIN
     Dosage: 10/325MG
     Route: 048
  2. ENDOCET 10MG/325MG [Suspect]
     Dosage: 10/325MG
     Route: 048
  3. FENTANYL [Concomitant]
     Indication: PRODUCT USED FOR UNKNOWN INDICATION
     Dosage: UNK
     Route: 062

REACTIONS (3)
  - Feeling abnormal [Unknown]
  - Tremor [Recovered/Resolved]
  - Drug ineffective [Unknown]
